FAERS Safety Report 14562690 (Version 1)
Quarter: 2018Q1

REPORT INFORMATION
  Report Type: Report from Study
  Country: None (occurrence: GB)
  Receive Date: 20180222
  Receipt Date: 20180222
  Transmission Date: 20180509
  Serious: Yes (Other)
  Sender: FDA-Public Use
  Company Number: GB-BIOVITRUM-2018GB0161

PATIENT
  Age: 7 Year
  Sex: Female

DRUGS (3)
  1. ORFADIN [Suspect]
     Active Substance: NITISINONE
     Indication: TYROSINAEMIA
     Dosage: 0.8 MG/KG
     Dates: start: 20100723
  2. ORFADIN [Suspect]
     Active Substance: NITISINONE
     Dosage: 1.02 MG/KG
     Dates: start: 20160217, end: 20170918
  3. ORFADIN [Suspect]
     Active Substance: NITISINONE
     Dates: start: 20170918

REACTIONS (1)
  - Drug level decreased [Not Recovered/Not Resolved]

NARRATIVE: CASE EVENT DATE: 20170918
